FAERS Safety Report 7640005-0 (Version None)
Quarter: 2011Q3

REPORT INFORMATION
  Report Type: 
  Country: None (occurrence: None)
  Receive Date: 20110727
  Receipt Date: 20110722
  Transmission Date: 20111222
  Serious: Yes (Death, Hospitalization)
  Sender: FDA-Public Use
  Company Number: US-GILEAD-2011-0037658

PATIENT
  Sex: Male

DRUGS (5)
  1. LETAIRIS [Suspect]
     Indication: CHRONIC OBSTRUCTIVE PULMONARY DISEASE
  2. LETAIRIS [Suspect]
     Indication: PULMONARY HYPERTENSION
     Route: 048
     Dates: start: 20110222, end: 20110325
  3. LETAIRIS [Suspect]
     Indication: CARDIAC FAILURE CONGESTIVE
  4. LETAIRIS [Suspect]
     Indication: LEFT VENTRICULAR DYSFUNCTION
  5. LETAIRIS [Suspect]
     Indication: RIGHT VENTRICULAR DYSFUNCTION

REACTIONS (3)
  - SWELLING [None]
  - RENAL FAILURE [None]
  - LOSS OF CONSCIOUSNESS [None]
